FAERS Safety Report 5453917-3 (Version None)
Quarter: 2007Q3

REPORT INFORMATION
  Report Type: 
  Country: None (occurrence: None)
  Receive Date: 20070917
  Receipt Date: 20070905
  Transmission Date: 20080115
  Serious: Yes (Hospitalization)
  Sender: FDA-Public Use
  Company Number: US-SANOFI-SYNTHELABO-A03200702987

PATIENT
  Sex: Male

DRUGS (5)
  1. AMBIEN CR [Suspect]
     Indication: INSOMNIA
     Route: 048
  2. COLCHICINE [Concomitant]
     Route: 065
  3. ALPRAZOLAM [Concomitant]
     Dosage: 0.25 TO 0.5 MG PRN
     Route: 048
  4. ALLOPURINOL [Concomitant]
     Dosage: UNK
     Route: 065
  5. PRILOSEC [Concomitant]
     Dosage: UNK
     Route: 065

REACTIONS (4)
  - CONFUSIONAL STATE [None]
  - FALL [None]
  - HEAD INJURY [None]
  - RIB FRACTURE [None]
